FAERS Safety Report 8572891-4 (Version None)
Quarter: 2012Q3

REPORT INFORMATION
  Report Type: 
  Country: None (occurrence: None)
  Receive Date: 20120806
  Receipt Date: 20120723
  Transmission Date: 20120928
  Serious: Yes (Hospitalization)
  Sender: FDA-Public Use
  Company Number: CN-ASTRAZENECA-2012SE54952

PATIENT
  Sex: Male
  Weight: 55 kg

DRUGS (5)
  1. FUROSEMIDE [Suspect]
     Indication: RENAL FAILURE CHRONIC
     Route: 048
     Dates: start: 20100916, end: 20101018
  2. NEXIUM [Suspect]
     Indication: RENAL FAILURE CHRONIC
     Route: 048
     Dates: start: 20100910, end: 20101012
  3. NEXIUM [Suspect]
     Indication: NEPHROTIC SYNDROME
     Route: 048
     Dates: start: 20100910, end: 20101012
  4. METHYLPREDNISOLONE [Suspect]
     Indication: NEPHROTIC SYNDROME
     Route: 048
     Dates: start: 20100910, end: 20101018
  5. METHYLPREDNISOLONE [Suspect]
     Indication: RENAL FAILURE CHRONIC
     Route: 048
     Dates: start: 20100910, end: 20101018

REACTIONS (1)
  - DRUG-INDUCED LIVER INJURY [None]
